FAERS Safety Report 18261687 (Version 1)
Quarter: 2020Q3

REPORT INFORMATION
  Report Type: Spontaneous
  Country: US (occurrence: US)
  Receive Date: 20200914
  Receipt Date: 20200914
  Transmission Date: 20201103
  Serious: No
  Sender: FDA-Public Use
  Company Number: US-HORIZON-PRO-0212-2020

PATIENT
  Age: 14 Year
  Sex: Male

DRUGS (1)
  1. PROCYSBI [Suspect]
     Active Substance: CYSTEAMINE BITARTRATE
     Indication: CYSTINOSIS
     Dosage: 675 MG EVERY 12 HOURS
     Route: 048
     Dates: start: 20130917

REACTIONS (5)
  - Malaise [Unknown]
  - Retching [Unknown]
  - Nausea [Recovering/Resolving]
  - Vomiting [Unknown]
  - Intentional dose omission [Unknown]
